FAERS Safety Report 9542241 (Version 1)
Quarter: 2013Q2

REPORT INFORMATION
  Report Type: Spontaneous
  Country: US (occurrence: None)
  Receive Date: 20130524
  Receipt Date: 20130524
  Transmission Date: 20140414
  Serious: Yes (Other)
  Sender: FDA-Public Use
  Company Number: PHEH2012US025222

PATIENT
  Age: 59 Year
  Sex: Female

DRUGS (9)
  1. BACLOFEN (BACLOFEN) [Concomitant]
  2. CRESTOR (ROSUVASTATIN CALCIUM) [Concomitant]
  3. VITAMIN D (ERGOCALCIFEROL) [Concomitant]
  4. TRIMETHOPRIM SULFATE W/POLYMYXIN B SULFATE (POLYMYXIN B SULFATE, TRIMETHOPRIM) [Concomitant]
  5. DEXILANT (DEXLANSOPRAZOLE) [Concomitant]
  6. MULTIPLE VITAMNS (ASCORBIC ACID, ERGOCALCIFEROL, FOLIC ACID, RETINOL, TOCOPHEROL, VITAMIN B NOS) [Concomitant]
  7. NUVIGIL (ARMODAFINIL) [Concomitant]
  8. GILENYA [Suspect]
     Route: 048
  9. NEURONTIN (GABAPENTIN) [Concomitant]

REACTIONS (2)
  - Abdominal discomfort [None]
  - Abdominal pain [None]
